FAERS Safety Report 13679087 (Version 1)
Quarter: 2017Q2

REPORT INFORMATION
  Report Type: Spontaneous
  Country: US (occurrence: US)
  Receive Date: 20170622
  Receipt Date: 20170622
  Transmission Date: 20170830
  Serious: Yes (Other)
  Sender: FDA-Public Use
  Company Number: US-PFIZER INC-2017266764

PATIENT
  Sex: Male

DRUGS (1)
  1. PREPARATION H CREAM MAX STRENGTH [Suspect]
     Active Substance: GLYCERIN\PETROLATUM\PHENYLEPHRINE HYDROCHLORIDE\PRAMOXINE HYDROCHLORIDE
     Indication: HAEMORRHOIDAL HAEMORRHAGE
     Dosage: UNK

REACTIONS (3)
  - Constipation [Unknown]
  - Rectal haemorrhage [Recovering/Resolving]
  - Disease recurrence [Recovering/Resolving]
